FAERS Safety Report 20543004 (Version 3)
Quarter: 2023Q2

REPORT INFORMATION
  Report Type: Report from Study
  Country: JP (occurrence: JP)
  Receive Date: 20220302
  Receipt Date: 20230622
  Transmission Date: 20230721
  Serious: Yes (Death, Other)
  Sender: FDA-Public Use
  Company Number: JP-GSKJP-JP2022JPN034151

PATIENT
  Age: 9 Decade
  Sex: Female

DRUGS (17)
  1. BOTULINUM TOXIN TYPE A [Suspect]
     Active Substance: BOTULINUM TOXIN TYPE A
     Indication: Hypertonic bladder
     Dosage: TIME INTERVAL: AS NECESSARY: 100 IU, SINGLE
     Route: 030
     Dates: start: 20210916, end: 20210916
  2. DAIMEDIN 3B COMBINATION CAPSULES [Concomitant]
     Indication: Product used for unknown indication
  3. BIOFERMIN NOS [Concomitant]
     Indication: Product used for unknown indication
  4. DOMPERIDONE [Concomitant]
     Active Substance: DOMPERIDONE
     Indication: Product used for unknown indication
  5. AZOSEMIDE TABLET [Concomitant]
     Indication: Product used for unknown indication
  6. CINAL TABLETS [Concomitant]
     Indication: Product used for unknown indication
  7. EDOXABAN TOSYLATE [Concomitant]
     Active Substance: EDOXABAN TOSYLATE
     Indication: Product used for unknown indication
  8. NEXIUM [Concomitant]
     Active Substance: ESOMEPRAZOLE MAGNESIUM
     Indication: Product used for unknown indication
  9. LAC-B TABLET (BIFIDOBACTERIUM INFANTIS + BIFIDOBACTERIUM LONGUM) [Concomitant]
     Indication: Product used for unknown indication
  10. TRANEXAMIC ACID [Concomitant]
     Active Substance: TRANEXAMIC ACID
     Indication: Product used for unknown indication
  11. PITAVASTATIN CALCIUM [Concomitant]
     Active Substance: PITAVASTATIN CALCIUM
     Indication: Product used for unknown indication
  12. MAGNESIUM OXIDE [Concomitant]
     Active Substance: MAGNESIUM OXIDE
     Indication: Product used for unknown indication
  13. REZALTAS COMBINATION TABLETS (AZELNIDIPINE + OLMESARTAN MEDOXOMIL) [Concomitant]
     Indication: Product used for unknown indication
  14. BROTIZOLAM [Concomitant]
     Active Substance: BROTIZOLAM
     Indication: Product used for unknown indication
  15. HERBALS [Concomitant]
     Active Substance: HERBALS
     Indication: Product used for unknown indication
  16. VIBEGRON [Concomitant]
     Active Substance: VIBEGRON
     Indication: Hypertonic bladder
  17. IMIDAFENACIN OD [Concomitant]
     Indication: Hypertonic bladder

REACTIONS (4)
  - Cerebral haemorrhage [Fatal]
  - Renal impairment [Recovered/Resolved]
  - Urine output decreased [Recovered/Resolved]
  - Dehydration [Recovered/Resolved]

NARRATIVE: CASE EVENT DATE: 20210917
